FAERS Safety Report 21711653 (Version 1)
Quarter: 2022Q4

REPORT INFORMATION
  Report Type: Report from Study
  Country: US (occurrence: None)
  Receive Date: 20221212
  Receipt Date: 20221212
  Transmission Date: 20230112
  Serious: Yes (Hospitalization)
  Sender: FDA-Public Use
  Company Number: US-ROCHE-3213400

PATIENT
  Age: 71 Year
  Sex: Female

DRUGS (3)
  1. BEVACIZUMAB [Suspect]
     Active Substance: BEVACIZUMAB
     Indication: Ovarian epithelial cancer
     Dosage: LAST ADMINISTRATION OF BEVACIZUMAB ON 29/MAR/2011?OVER 30-90 MINUTES ONDAY 1 OF CYCLES2+
     Route: 042
     Dates: start: 20110214
  2. PACLITAXEL [Suspect]
     Active Substance: PACLITAXEL
     Indication: Ovarian epithelial cancer
     Dosage: OVER 1HR ONDAYS 1, 8 +15 CYCLES1
     Route: 042
     Dates: start: 20110214, end: 20110329
  3. CARBOPLATIN [Suspect]
     Active Substance: CARBOPLATIN
     Indication: Ovarian epithelial cancer
     Dosage: 6 IV ONDAY 1 CYCLES 1
     Route: 042
     Dates: start: 20110214, end: 20110329

REACTIONS (2)
  - Constipation [Unknown]
  - Large intestine perforation [Unknown]

NARRATIVE: CASE EVENT DATE: 20110416
